FAERS Safety Report 14064678 (Version 1)
Quarter: 2017Q4

REPORT INFORMATION
  Report Type: Spontaneous
  Country: JP (occurrence: JP)
  Receive Date: 20171009
  Receipt Date: 20171009
  Transmission Date: 20180321
  Serious: Yes (Other)
  Sender: FDA-Public Use
  Company Number: JP-JNJFOC-20171004748

PATIENT
  Age: 16 Year
  Sex: Male

DRUGS (1)
  1. STELARA [Suspect]
     Active Substance: USTEKINUMAB
     Indication: PRODUCT USED FOR UNKNOWN INDICATION
     Route: 042
     Dates: start: 20170607

REACTIONS (1)
  - Intestinal ulcer [Recovered/Resolved]

NARRATIVE: CASE EVENT DATE: 20170619
